FAERS Safety Report 8430371-0 (Version None)
Quarter: 2012Q2

REPORT INFORMATION
  Report Type: 
  Country: None (occurrence: None)
  Receive Date: 20120323
  Receipt Date: 20110727
  Transmission Date: 20120825
  Serious: Yes (Hospitalization)
  Sender: FDA-Public Use
  Company Number: 163-21880-11073061

PATIENT
  Age: 73 Year
  Sex: Male
  Weight: 200 kg

DRUGS (14)
  1. UROXATRAL [Concomitant]
  2. GABAPENTIN [Concomitant]
  3. REVLIMID [Suspect]
     Indication: MULTIPLE MYELOMA
     Dosage: 5 MG, M-W-F, PO
     Route: 048
     Dates: start: 20110601
  4. TOPROL XL (METOPOROLOL SUCCINATE) [Concomitant]
  5. FOLBEE (TRIOBE) [Concomitant]
  6. DEXAMETHASONE [Concomitant]
  7. ATIVAN [Concomitant]
  8. LISINOPRIL [Concomitant]
  9. NITROQUICK (GLYCERYL TRINITRATE( [Concomitant]
  10. LEXAPRO (ESCITALO0PRAM OXALATE) [Concomitant]
  11. ASPIRIN [Concomitant]
  12. AMBIEN [Concomitant]
  13. LEVAQUIN [Concomitant]
  14. LIPITOR (ATO9RVASTATIN) [Concomitant]

REACTIONS (2)
  - RASH GENERALISED [None]
  - PYREXIA [None]
